FAERS Safety Report 7424031-2 (Version None)
Quarter: 2011Q2

REPORT INFORMATION
  Report Type: 
  Country: None (occurrence: None)
  Receive Date: 20110419
  Receipt Date: 20091120
  Transmission Date: 20111010
  Serious: Yes (Other)
  Sender: FDA-Public Use
  Company Number: US-BAYER-200940906NA

PATIENT
  Age: 41 Year
  Sex: Male
  Weight: 111.11 kg

DRUGS (12)
  1. LASIX [Concomitant]
     Dosage: 40 MG, QD
     Route: 048
  2. TRASYLOL [Suspect]
     Indication: CORONARY ARTERY BYPASS
  3. NPH INSULIN [Concomitant]
     Dosage: 25 UNITS IN MORNING AND 10 UNITS IN AFTERNOON
  4. PREDNISONE [Concomitant]
     Dosage: 7.5 MG, QD
     Route: 048
  5. CONTRAST MEDIA [Concomitant]
     Indication: CATHETERISATION CARDIAC
     Dosage: UNK
     Dates: start: 20011003
  6. PRILOSEC [Concomitant]
     Dosage: 20 MG, UNK
     Route: 048
  7. CLONIDINE [Concomitant]
     Dosage: 0.2 MG, TID
     Route: 048
  8. TRENTAL [Concomitant]
     Dosage: 400 MG, TID
     Route: 048
  9. ACETYLSALICYLIC ACID SRT [Concomitant]
     Dosage: 1 TABLET DAILY
     Route: 048
  10. DIOVAN [Concomitant]
     Dosage: 160 MG, QD
     Route: 048
  11. PROCARDIA XL [Concomitant]
     Dosage: 30 MG, QD
     Route: 048
  12. NEORAL [Concomitant]
     Dosage: 100 MG IN THE MORNING, 75 MG AT 3:00 PM AND 11:00 PM
     Route: 048

REACTIONS (11)
  - INJURY [None]
  - ANHEDONIA [None]
  - MULTI-ORGAN FAILURE [None]
  - RENAL FAILURE [None]
  - DISABILITY [None]
  - UNEVALUABLE EVENT [None]
  - FEAR [None]
  - PAIN [None]
  - ANXIETY [None]
  - DEPRESSION [None]
  - RENAL INJURY [None]
